FAERS Safety Report 6819356-5 (Version None)
Quarter: 2010Q3

REPORT INFORMATION
  Report Type: 
  Country: None (occurrence: None)
  Receive Date: 20100707
  Receipt Date: 20100630
  Transmission Date: 20110219
  Serious: Yes (Hospitalization, Other)
  Sender: FDA-Public Use
  Company Number: US-BAYER-201017422BCC

PATIENT
  Age: 65 Year
  Sex: Male
  Weight: 99 kg

DRUGS (17)
  1. ASPIRIN [Suspect]
     Indication: CARDIAC DISORDER
     Route: 048
     Dates: start: 20040904, end: 20050222
  2. CLOPIDOGREL [Suspect]
     Indication: CARDIAC DISORDER
     Route: 048
     Dates: start: 20040904, end: 20050222
  3. NITROGLYCERIN [Concomitant]
  4. DOCUSATE [Concomitant]
  5. LANSOPRAZOLE [Concomitant]
  6. DIGOXIN [Concomitant]
  7. ATENOLOL [Concomitant]
  8. AMIODARONE HCL [Concomitant]
  9. CITALOPRAM HYDROBROMIDE [Concomitant]
  10. CLONIDINE [Concomitant]
  11. SIMVASTATIN [Concomitant]
  12. ACETAMINOPHEN AND HYDROCODONE [Concomitant]
  13. HYDROCHLOROTHIAZIDE [Concomitant]
  14. POTASSIUM CHLORIDE [Concomitant]
  15. METOCLOPRAMIDE [Concomitant]
  16. MULTI-VITAMIN [Concomitant]
  17. FLUTICASONE [Concomitant]

REACTIONS (9)
  - ATRIAL FIBRILLATION [None]
  - CELLULITIS [None]
  - CEREBRAL HAEMORRHAGE [None]
  - DIZZINESS [None]
  - HYPERTENSION [None]
  - OEDEMA PERIPHERAL [None]
  - RETCHING [None]
  - VERTIGO [None]
  - VOMITING [None]
